FAERS Safety Report 7593688-8 (Version None)
Quarter: 2011Q3

REPORT INFORMATION
  Report Type: 
  Country: None (occurrence: None)
  Receive Date: 20110706
  Receipt Date: 20110621
  Transmission Date: 20111222
  Serious: Yes (Other)
  Sender: FDA-Public Use
  Company Number: PHHY2011US35990

PATIENT
  Sex: Male

DRUGS (5)
  1. EXJADE [Suspect]
     Indication: HAEMOCHROMATOSIS
     Dosage: 500 MG, 5 TABS DAILY
     Route: 048
     Dates: start: 20101201, end: 20110510
  2. EXJADE [Suspect]
     Indication: SICKLE CELL ANAEMIA
  3. HYDROXYUREA [Concomitant]
     Indication: SICKLE CELL ANAEMIA
     Dosage: 500 MG, A DAY
  4. FOLIC ACID [Concomitant]
     Dosage: 1 MG, QD
     Route: 048
  5. AMLODIPINE [Concomitant]
     Indication: HYPERTENSION
     Dosage: 10 MG, A DAY
     Route: 048

REACTIONS (13)
  - CARDIAC FAILURE CONGESTIVE [None]
  - OEDEMA PERIPHERAL [None]
  - PROTEINURIA [None]
  - WHEEZING [None]
  - URINE ABNORMALITY [None]
  - FLUID RETENTION [None]
  - NEPHROTIC SYNDROME [None]
  - WEIGHT INCREASED [None]
  - HYPERTENSION [None]
  - CLUBBING [None]
  - DYSPNOEA [None]
  - RHONCHI [None]
  - RALES [None]
